FAERS Safety Report 10506924 (Version 1)
Quarter: 2014Q3

REPORT INFORMATION
  Report Type: Spontaneous
  Country: US (occurrence: None)
  Receive Date: 20140915
  Receipt Date: 20140915
  Transmission Date: 20150326
  Serious: Yes (Other)
  Sender: FDA-Public Use
  Company Number: 2013-US-001703

PATIENT
  Age: 48 Year
  Sex: Female

DRUGS (4)
  1. UNSPECIFIED MEDICATION (ALL OTHER THERAPEUTIC PRODUCTS) [Concomitant]
  2. XYREM [Suspect]
     Active Substance: SODIUM OXYBATE
     Indication: CATAPLEXY
     Route: 048
     Dates: start: 20060426, end: 2006
  3. UNISOM SLEEPTABS [Suspect]
     Active Substance: DOXYLAMINE SUCCINATE
     Indication: PRODUCT USED FOR UNKNOWN INDICATION
  4. XYREM [Suspect]
     Active Substance: SODIUM OXYBATE
     Indication: NARCOLEPSY
     Route: 048
     Dates: start: 20060426, end: 2006

REACTIONS (9)
  - Insomnia [None]
  - Rash [None]
  - Dependence [None]
  - Fibromyalgia [None]
  - Withdrawal syndrome [None]
  - Psychotic disorder [None]
  - Stress [None]
  - Chest pain [None]
  - Panic disorder [None]

NARRATIVE: CASE EVENT DATE: 20130929
